FAERS Safety Report 19080911 (Version 1)
Quarter: 2021Q1

REPORT INFORMATION
  Report Type: Spontaneous
  Country: ES (occurrence: ES)
  Receive Date: 20210331
  Receipt Date: 20210331
  Transmission Date: 20210420
  Serious: Yes (Life-Threatening, Hospitalization, Congenital Anomaly, Other)
  Sender: FDA-Public Use
  Company Number: ES-VALIDUS PHARMACEUTICALS LLC-ES-2021VAL000944

PATIENT
  Age: 32 Week
  Sex: Male

DRUGS (5)
  1. FUROSEMIDE. [Suspect]
     Active Substance: FUROSEMIDE
     Indication: PRODUCT USED FOR UNKNOWN INDICATION
     Dosage: UNK
     Route: 065
  2. OLMESARTAN [Suspect]
     Active Substance: OLMESARTAN
     Indication: ESSENTIAL HYPERTENSION
     Dosage: LAST DOSE ADMINISTERED 24 HOURS PRIOR TO C?SECTION
     Route: 064
  3. CAPTOPRIL. [Suspect]
     Active Substance: CAPTOPRIL
     Indication: PRODUCT USED FOR UNKNOWN INDICATION
     Dosage: UNK
     Route: 065
  4. AMLODIPINE [Suspect]
     Active Substance: AMLODIPINE BESYLATE
     Indication: ESSENTIAL HYPERTENSION
     Dosage: UNK, QD, LAST DOSE ADMINISTERED 24 HOURS PRIOR TO C?SECTION
     Route: 064
  5. NICARDIPINE [Suspect]
     Active Substance: NICARDIPINE
     Indication: PRODUCT USED FOR UNKNOWN INDICATION
     Dosage: UNK
     Route: 065

REACTIONS (19)
  - Hypotension [Recovered/Resolved]
  - Pneumothorax [Recovered/Resolved]
  - Delayed fontanelle closure [Recovered/Resolved]
  - Anaemia [Recovered/Resolved]
  - Hypotonia neonatal [Recovered/Resolved]
  - Potter^s syndrome [Recovered/Resolved]
  - Areflexia [Recovered/Resolved]
  - Low set ears [Recovered/Resolved]
  - Talipes [Recovered/Resolved]
  - Hypertension [Recovered/Resolved]
  - Pulmonary hypoplasia [Recovered/Resolved]
  - Kidney small [Unknown]
  - Foetal growth restriction [Recovered/Resolved]
  - Foetal exposure during pregnancy [Recovered/Resolved]
  - Anuria [Recovered/Resolved]
  - Proteinuria [Recovered/Resolved]
  - Renal failure neonatal [Recovered/Resolved]
  - Congenital anomaly [Unknown]
  - Oliguria [Recovered/Resolved]
